FAERS Safety Report 10229111 (Version 1)
Quarter: 2014Q2

REPORT INFORMATION
  Report Type: Spontaneous
  Country: US (occurrence: US)
  Receive Date: 20140611
  Receipt Date: 20140611
  Transmission Date: 20141212
  Serious: Yes (Life-Threatening, Hospitalization)
  Sender: FDA-Public Use
  Company Number: PHHY2014US067589

PATIENT
  Age: 17 Year
  Sex: Male

DRUGS (4)
  1. VALPROIC ACID [Suspect]
     Indication: AFFECTIVE DISORDER
     Dosage: 146 MG/KG, UNK
  2. IMIPRAMINE [Interacting]
     Indication: AFFECTIVE DISORDER
     Dosage: 1.9 MG/KG, UNK
  3. GUANFACINE HYDROCHLORIDE [Interacting]
     Indication: AFFECTIVE DISORDER
     Dosage: 0.39 MG/KG, UNK
  4. OLANZAPINE [Interacting]
     Indication: AFFECTIVE DISORDER
     Dosage: 2.9 MG/KG, UNK

REACTIONS (7)
  - Brain oedema [Recovering/Resolving]
  - Intracranial pressure increased [Recovered/Resolved]
  - Brain herniation [Unknown]
  - Hyperammonaemia [Unknown]
  - Hypertension [Unknown]
  - Drug level increased [Unknown]
  - Poisoning [Unknown]
